FAERS Safety Report 15424078 (Version 1)
Quarter: 2018Q3

REPORT INFORMATION
  Report Type: Spontaneous
  Country: US (occurrence: US)
  Receive Date: 20180921
  Receipt Date: 20180921
  Transmission Date: 20181010
  Serious: No
  Sender: FDA-Public Use
  Company Number: None

PATIENT

DRUGS (1)
  1. HEPARIN [Suspect]
     Active Substance: HEPARIN SODIUM
     Indication: ANTICOAGULANT THERAPY
     Dosage: ?          OTHER FREQUENCY:DEPENDS ON PATIENT;?
     Route: 042

REACTIONS (2)
  - Device capturing issue [None]
  - Incorrect dose administered [None]

NARRATIVE: CASE EVENT DATE: 20180920
